FAERS Safety Report 8359287-5 (Version None)
Quarter: 2012Q2

REPORT INFORMATION
  Report Type: 
  Country: None (occurrence: None)
  Receive Date: 20120515
  Receipt Date: 20120507
  Transmission Date: 20120825
  Serious: Yes (Other)
  Sender: FDA-Public Use
  Company Number: AU-UCBSA-056923

PATIENT
  Sex: Male

DRUGS (1)
  1. VIMPAT [Suspect]
     Route: 048
     Dates: start: 20120301, end: 20120101

REACTIONS (5)
  - THROMBOCYTOPENIA [None]
  - NEUTROPENIA [None]
  - BONE MARROW FAILURE [None]
  - OROPHARYNGEAL PAIN [None]
  - HEADACHE [None]
